FAERS Safety Report 13755862 (Version 2)
Quarter: 2017Q3

REPORT INFORMATION
  Report Type: Spontaneous
  Country: FR (occurrence: FR)
  Receive Date: 20170714
  Receipt Date: 20170728
  Transmission Date: 20171127
  Serious: Yes (Death)
  Sender: FDA-Public Use
  Company Number: PHHY2017FR094730

PATIENT
  Age: 78 Year
  Sex: Male
  Weight: 69 kg

DRUGS (5)
  1. JOSACINE [Concomitant]
     Active Substance: JOSAMYCIN
     Indication: ANTIBIOTIC THERAPY
     Dosage: 1 DF, BID
     Route: 048
     Dates: start: 20170609, end: 20170618
  2. PREVISCAN [Concomitant]
     Active Substance: FLUINDIONE
     Indication: ANTICOAGULANT THERAPY
     Dosage: 0.75 DF, QD
     Route: 065
  3. DIFFU K [Concomitant]
     Active Substance: POTASSIUM CHLORIDE
     Indication: PRODUCT USED FOR UNKNOWN INDICATION
     Dosage: 2 DF, BID
     Route: 065
  4. ENTRESTO [Suspect]
     Active Substance: SACUBITRIL\VALSARTAN
     Indication: CARDIAC FAILURE
     Dosage: 50 MG, BID
     Route: 048
     Dates: start: 20170602, end: 20170618
  5. LASILIX [Concomitant]
     Active Substance: FUROSEMIDE
     Indication: DIURETIC THERAPY
     Dosage: 0.5 DF, QD
     Route: 065

REACTIONS (3)
  - Creatinine renal clearance decreased [Not Recovered/Not Resolved]
  - Chromaturia [Unknown]
  - Cardiac failure chronic [Fatal]

NARRATIVE: CASE EVENT DATE: 20170626
